FAERS Safety Report 8454987-0 (Version None)
Quarter: 2012Q2

REPORT INFORMATION
  Report Type: 
  Country: None (occurrence: None)
  Receive Date: 20120614
  Receipt Date: 20120614
  Transmission Date: 20120825
  Serious: Yes (Other)
  Sender: FDA-Public Use
  Company Number: None

PATIENT
  Age: 34 Year
  Sex: Male

DRUGS (4)
  1. CHLOPIN [Concomitant]
  2. FANAPT [Suspect]
     Indication: SCHIZOPHRENIA
     Dosage: 12MG 2 TIMES A DAY PO
     Route: 048
  3. PAXIL [Concomitant]
  4. TOPAMAX [Concomitant]

REACTIONS (1)
  - ENURESIS [None]
